FAERS Safety Report 8704861 (Version 4)
Quarter: 2014Q3

REPORT INFORMATION
  Report Type: Report from Study
  Country: JP (occurrence: JP)
  Receive Date: 20120803
  Receipt Date: 20140902
  Transmission Date: 20150326
  Serious: Yes (Other)
  Sender: FDA-Public Use
  Company Number: JP-AMGEN-JPNCT2012048474

PATIENT
  Age: 71 Year
  Sex: Female
  Weight: 56 kg

DRUGS (8)
  1. PRECIPITATED CALCIUM CARBONATE [Concomitant]
     Active Substance: CALCIUM CARBONATE
     Indication: DIABETIC NEPHROPATHY
     Dosage: UNK
     Route: 048
  2. HUMALOG [Concomitant]
     Active Substance: INSULIN LISPRO
     Indication: DIABETIC NEPHROPATHY
     Dosage: UNK
     Route: 058
  3. LANTUS [Concomitant]
     Active Substance: INSULIN GLARGINE
     Indication: DIABETIC NEPHROPATHY
     Dosage: UNK
     Route: 058
  4. ASPENON [Concomitant]
     Active Substance: APRINDINE HYDROCHLORIDE
     Dosage: UNK
     Route: 048
  5. TAKEPRON [Concomitant]
     Active Substance: LANSOPRAZOLE
     Dosage: UNK
     Route: 048
  6. WARFARIN [Concomitant]
     Active Substance: WARFARIN
     Dosage: UNK
     Route: 048
  7. JUSO [Concomitant]
     Indication: DIABETIC NEPHROPATHY
     Dosage: UNK
     Route: 048
  8. DARBEPOETIN ALFA - KHK [Suspect]
     Active Substance: DARBEPOETIN ALFA
     Indication: NEPHROGENIC ANAEMIA
     Dosage: 120 MUG, Q4WK
     Route: 058
     Dates: start: 20110620

REACTIONS (4)
  - Seasonal allergy [Recovering/Resolving]
  - Iron deficiency anaemia [Recovering/Resolving]
  - Atrial fibrillation [Recovered/Resolved]
  - Hypercholesterolaemia [Not Recovered/Not Resolved]

NARRATIVE: CASE EVENT DATE: 20120113
